FAERS Safety Report 7299151-6 (Version None)
Quarter: 2011Q1

REPORT INFORMATION
  Report Type: 
  Country: None (occurrence: None)
  Receive Date: 20110208
  Receipt Date: 20110125
  Transmission Date: 20110831
  Serious: Yes (Hospitalization)
  Sender: FDA-Public Use
  Company Number: 026186

PATIENT

DRUGS (1)
  1. XOZAL (XOZAL) [Suspect]
     Dosage: (STARTED 4 MONTHS AGO)
     Dates: start: 20100101

REACTIONS (2)
  - BREAST ENLARGEMENT [None]
  - WEIGHT INCREASED [None]
